FAERS Safety Report 25593731 (Version 1)
Quarter: 2025Q3

REPORT INFORMATION
  Report Type: Spontaneous
  Country: US (occurrence: US)
  Receive Date: 20250722
  Receipt Date: 20250722
  Transmission Date: 20251020
  Serious: Yes (Other)
  Sender: JOHNSON AND JOHNSON
  Company Number: US-JNJFOC-20250719824

PATIENT
  Sex: Male

DRUGS (1)
  1. SPRAVATO [Suspect]
     Active Substance: ESKETAMINE
     Indication: Product used for unknown indication
     Route: 045

REACTIONS (7)
  - Alcoholism [Recovering/Resolving]
  - Drug ineffective [Unknown]
  - Motor dysfunction [Unknown]
  - Gambling disorder [Unknown]
  - Fall [Unknown]
  - Hypoaesthesia [Recovered/Resolved]
  - Negative thoughts [Unknown]
